FAERS Safety Report 11854718 (Version 1)
Quarter: 2015Q4

REPORT INFORMATION
  Report Type: Spontaneous
  Country: US (occurrence: US)
  Receive Date: 20151221
  Receipt Date: 20151221
  Transmission Date: 20160305
  Serious: Yes (Hospitalization)
  Sender: FDA-Public Use
  Company Number: US-BEH-2015056794

PATIENT
  Age: 40 Year
  Sex: Female

DRUGS (1)
  1. BERINERT [Suspect]
     Active Substance: HUMAN C1-ESTERASE INHIBITOR
     Indication: HEREDITARY ANGIOEDEMA
     Dosage: 500 UNITS/VIAL
     Route: 042
     Dates: start: 20141028

REACTIONS (3)
  - Swelling [Unknown]
  - Infection [Unknown]
  - Procedural complication [Unknown]

NARRATIVE: CASE EVENT DATE: 20151207
